FAERS Safety Report 17716232 (Version 6)
Quarter: 2020Q4

REPORT INFORMATION
  Report Type: Report from Study
  Country: None (occurrence: AU)
  Receive Date: 20200428
  Receipt Date: 20201023
  Transmission Date: 20210113
  Serious: Yes (Hospitalization)
  Sender: FDA-Public Use
  Company Number: AU-ABBVIE-20K-008-3381123-00

PATIENT
  Age: 65 Year
  Sex: Female

DRUGS (2)
  1. DUODOPA [Suspect]
     Active Substance: CARBIDOPA\LEVODOPA
     Dosage: 100ML GEL CASSETTE?DOSE DECREASED?16 HOURS THERAPY
     Route: 050
     Dates: start: 20200221
  2. DUODOPA [Suspect]
     Active Substance: CARBIDOPA\LEVODOPA
     Indication: PARKINSON^S DISEASE
     Dosage: 100ML GEL CASSETTE FREQUENCY TEXT -16 HOURS
     Route: 050
     Dates: start: 20191129

REACTIONS (9)
  - Acrochordon [Recovered/Resolved]
  - Stoma site infection [Recovered/Resolved]
  - Pain [Unknown]
  - Staphylococcal infection [Recovered/Resolved]
  - Dyskinesia [Not Recovered/Not Resolved]
  - Fall [Unknown]
  - Sleep deficit [Unknown]
  - Stoma site hypergranulation [Recovered/Resolved]
  - Spinal column injury [Unknown]

NARRATIVE: CASE EVENT DATE: 2020
